FAERS Safety Report 8006921-5 (Version None)
Quarter: 2011Q4

REPORT INFORMATION
  Report Type: 
  Country: None (occurrence: None)
  Receive Date: 20111227
  Receipt Date: 20111221
  Transmission Date: 20120403
  Serious: Yes (Other)
  Sender: FDA-Public Use
  Company Number: JP-JNJFOC-20111201572

PATIENT
  Age: 72 Year
  Sex: Male

DRUGS (5)
  1. MUCOSTA [Concomitant]
     Route: 048
  2. MOTILIUM [Concomitant]
     Route: 065
     Dates: start: 20110810
  3. TRAMADOL HYDROCHLORIDE/ACETAMINOPHEN [Suspect]
     Indication: PAIN
     Route: 048
     Dates: start: 20110910
  4. RABEPRAZOLE SODIUM [Concomitant]
     Route: 048
  5. TRAMADOL HYDROCHLORIDE/ACETAMINOPHEN [Suspect]
     Route: 048
     Dates: start: 20110810, end: 20110909

REACTIONS (1)
  - MALLORY-WEISS SYNDROME [None]
